FAERS Safety Report 16776658 (Version 1)
Quarter: 2019Q3

REPORT INFORMATION
  Report Type: Spontaneous
  Country: US (occurrence: US)
  Receive Date: 20190905
  Receipt Date: 20190905
  Transmission Date: 20191005
  Serious: Yes (Hospitalization, Other)
  Sender: FDA-Public Use
  Company Number: US-SA-2019SA242862

PATIENT
  Age: 66 Year
  Sex: Female

DRUGS (1)
  1. ALEMTUZUMAB [Suspect]
     Active Substance: ALEMTUZUMAB
     Indication: MULTIPLE SCLEROSIS
     Dosage: UNK

REACTIONS (4)
  - Haematuria [Recovering/Resolving]
  - Contusion [Recovering/Resolving]
  - Acquired haemophilia [Recovering/Resolving]
  - Haemophilia A with anti factor VIII [Recovering/Resolving]
